FAERS Safety Report 6754358-9 (Version None)
Quarter: 2010Q2

REPORT INFORMATION
  Report Type: 
  Country: None (occurrence: None)
  Receive Date: 20100603
  Receipt Date: 20100524
  Transmission Date: 20101027
  Serious: Yes (Hospitalization)
  Sender: FDA-Public Use
  Company Number: JP-BRISTOL-MYERS SQUIBB COMPANY-15130750

PATIENT
  Age: 31 Year
  Sex: Female

DRUGS (3)
  1. ABILIFY [Suspect]
     Indication: SCHIZOPHRENIA
     Dosage: 08APR10/15APR(6MG:8D;16APR/22APR(12MG:7D;23APR/27APR(24MG:5D;28APR/17MAY(18MG:20D)
     Route: 048
     Dates: start: 20100408, end: 20100517
  2. AKINETON [Suspect]
     Dosage: TABS;29APR:1MG;30APR2010:1MGTID;24MAY2010; INTIALLY DOSE DECREASED
     Route: 048
     Dates: start: 20100429, end: 20100524
  3. CHLORPROMAZINE HCL [Suspect]
     Route: 048
     Dates: start: 20100507, end: 20100517

REACTIONS (2)
  - CHOLECYSTITIS [None]
  - LIVER DISORDER [None]
